FAERS Safety Report 7407572-3 (Version None)
Quarter: 2011Q2

REPORT INFORMATION
  Report Type: 
  Country: None (occurrence: None)
  Receive Date: 20110405
  Receipt Date: 20110321
  Transmission Date: 20111010
  Serious: Yes (Other)
  Sender: FDA-Public Use
  Company Number: ALA_02209_2011

PATIENT
  Sex: Male

DRUGS (1)
  1. REGLAN [Suspect]
     Indication: PRODUCT USED FOR UNKNOWN INDICATION
     Dosage: DF, ORAL
     Route: 047
     Dates: start: 20060101, end: 20060601

REACTIONS (9)
  - EXTRAPYRAMIDAL DISORDER [None]
  - PARKINSON'S DISEASE [None]
  - EMOTIONAL DISORDER [None]
  - TARDIVE DYSKINESIA [None]
  - DYSKINESIA [None]
  - TREMOR [None]
  - ECONOMIC PROBLEM [None]
  - CHOREA [None]
  - DYSTONIA [None]
